FAERS Safety Report 20344044 (Version 1)
Quarter: 2022Q1

REPORT INFORMATION
  Report Type: Report from Study
  Country: US (occurrence: US)
  Receive Date: 20220118
  Receipt Date: 20220118
  Transmission Date: 20220423
  Serious: Yes (Other)
  Sender: FDA-Public Use
  Company Number: US-KOREA IPSEN Pharma-2022-00952

PATIENT
  Age: 81 Year
  Sex: Male

DRUGS (1)
  1. SOMATULINE DEPOT [Suspect]
     Active Substance: LANREOTIDE ACETATE
     Indication: Neuroendocrine tumour
     Dosage: 120 MG EVERY 4 WEEKS SUB Q
     Route: 058
     Dates: start: 201907

REACTIONS (3)
  - Lung neoplasm malignant [Unknown]
  - Hypertension [Unknown]
  - Hypervolaemia [Unknown]
